FAERS Safety Report 24981444 (Version 3)
Quarter: 2025Q2

REPORT INFORMATION
  Report Type: Spontaneous
  Country: FR (occurrence: FR)
  Receive Date: 20250218
  Receipt Date: 20250430
  Transmission Date: 20250716
  Serious: No
  Sender: FERRING
  Company Number: FR-FERRINGPH-2025FE00653

PATIENT

DRUGS (5)
  1. MENOPUR [Suspect]
     Active Substance: FOLLITROPIN\LUTEINIZING HORMONE
     Indication: Assisted reproductive technology
     Dosage: 75 INTERNATIONAL UNIT, DAILY, FOR 11 DAYS
     Route: 065
     Dates: start: 20231114, end: 20231123
  2. MENOPUR [Suspect]
     Active Substance: FOLLITROPIN\LUTEINIZING HORMONE
     Dosage: 37.5 INTERNATIONAL UNIT, DAILY, FOR 14 DAYS
     Route: 065
     Dates: start: 20231030, end: 20231113
  3. LUVERIS [Suspect]
     Active Substance: LUTROPIN ALFA
     Indication: Secondary hypogonadism
     Dosage: 75 INTERNATIONAL UNIT, DAILY
     Route: 065
     Dates: start: 20231118, end: 20231123
  4. VITAMIN D [Concomitant]
     Active Substance: VITAMIN D NOS
     Indication: Osteoporosis
  5. CALCIUM [Concomitant]
     Active Substance: CALCIUM
     Indication: Osteoporosis

REACTIONS (2)
  - Keratitis [Recovered/Resolved]
  - Lacrimation disorder [Recovered/Resolved]

NARRATIVE: CASE EVENT DATE: 20240101
